FAERS Safety Report 9364477 (Version 1)
Quarter: 2013Q2

REPORT INFORMATION
  Report Type: Spontaneous
  Country: US (occurrence: US)
  Receive Date: 20130624
  Receipt Date: 20130624
  Transmission Date: 20140414
  Serious: Yes (Life-Threatening, Hospitalization)
  Sender: FDA-Public Use
  Company Number: US-PFIZER INC-2013183570

PATIENT
  Age: 29 Year
  Sex: Female

DRUGS (3)
  1. CISPLATIN [Suspect]
     Indication: TERATOMA
     Dosage: 75 MG/M2 (INSTEAD OF 20 MG/M2) FOR FOUR DAYS, 21 DAY CYCLE
  2. BLEOMYCIN [Concomitant]
     Indication: TERATOMA
     Dosage: CYCLIC, 21DAY CYCLE
  3. ETOPOSIDE [Concomitant]
     Indication: TERATOMA
     Dosage: CYCLIC, 21DAY CYCLE

REACTIONS (17)
  - Overdose [Not Recovered/Not Resolved]
  - Bradycardia [Recovered/Resolved]
  - Convulsion [Recovered/Resolved]
  - Staring [Recovered/Resolved]
  - Mental status changes [Recovered/Resolved]
  - Nausea [Recovered/Resolved]
  - Vomiting [Recovered/Resolved]
  - Dehydration [Recovered/Resolved]
  - Hypokalaemia [Recovered/Resolved]
  - Ototoxicity [Not Recovered/Not Resolved]
  - Headache [Recovered/Resolved]
  - Bone marrow failure [Recovering/Resolving]
  - Liver disorder [Recovering/Resolving]
  - Hepatic enzyme increased [Recovering/Resolving]
  - Blood urea increased [Recovered/Resolved]
  - Blood creatinine increased [Recovered/Resolved]
  - Glomerular filtration rate decreased [Recovered/Resolved]
